FAERS Safety Report 7624789-3 (Version None)
Quarter: 2011Q3

REPORT INFORMATION
  Report Type: 
  Country: None (occurrence: None)
  Receive Date: 20110720
  Receipt Date: 20090715
  Transmission Date: 20111222
  Serious: Yes (Death)
  Sender: FDA-Public Use
  Company Number: US-BAYER-200925355NA

PATIENT
  Sex: Male

DRUGS (19)
  1. OMNISCAN [Suspect]
     Indication: NUCLEAR MAGNETIC RESONANCE IMAGING
     Dosage: 50 ML, UNK
     Dates: start: 20040330
  2. ACETYLSALICYLIC ACID SRT [Concomitant]
  3. OMNISCAN [Suspect]
     Indication: ANGIOGRAM
     Dosage: 20 ML, UNK
     Dates: start: 20050113
  4. PROHANCE [Suspect]
     Indication: ANGIOGRAM
  5. RENAGEL [Concomitant]
  6. COUMADIN [Concomitant]
  7. MAGNEVIST [Suspect]
     Indication: ANGIOGRAM
  8. OMNISCAN [Suspect]
     Dosage: 15 ML, UNK
     Dates: start: 20050204
  9. LISINOPRIL [Concomitant]
  10. MULTIHANCE [Suspect]
     Indication: NUCLEAR MAGNETIC RESONANCE IMAGING
  11. ANALGESICS [Concomitant]
  12. SYNTHROID [Concomitant]
  13. PLAVIX [Concomitant]
  14. MAGNEVIST [Suspect]
     Indication: NUCLEAR MAGNETIC RESONANCE IMAGING
     Dosage: UNK
     Dates: start: 20030909
  15. ATENOLOL [Concomitant]
  16. NEPHROCAPS [Concomitant]
  17. OPTIMARK [Suspect]
     Indication: NUCLEAR MAGNETIC RESONANCE IMAGING
  18. PROHANCE [Suspect]
     Indication: NUCLEAR MAGNETIC RESONANCE IMAGING
     Dosage: 50 ML, UNK
     Dates: start: 20040330
  19. AVANDIA [Concomitant]

REACTIONS (10)
  - NEPHROGENIC SYSTEMIC FIBROSIS [None]
  - JOINT RANGE OF MOTION DECREASED [None]
  - DEFORMITY [None]
  - SKIN HYPERTROPHY [None]
  - MOTOR DYSFUNCTION [None]
  - PAIN [None]
  - JOINT CONTRACTURE [None]
  - SKIN TIGHTNESS [None]
  - ABASIA [None]
  - SKIN DISORDER [None]
